FAERS Safety Report 25964837 (Version 2)
Quarter: 2025Q4

REPORT INFORMATION
  Report Type: Spontaneous
  Country: AU (occurrence: AU)
  Receive Date: 20251027
  Receipt Date: 20251119
  Transmission Date: 20260117
  Serious: Yes (Hospitalization, Other)
  Sender: PFIZER
  Company Number: AU-PFIZER INC-202500210769

PATIENT
  Age: 38 Year
  Sex: Male
  Weight: 57 kg

DRUGS (6)
  1. NURTEC ODT [Suspect]
     Active Substance: RIMEGEPANT SULFATE
     Indication: Prophylaxis
     Dosage: 75 MG (QOD)
     Route: 048
     Dates: start: 20251002, end: 20251023
  2. LIDOCAINE HYDROCHLORIDE [Concomitant]
     Active Substance: LIDOCAINE HYDROCHLORIDE
     Indication: Migraine
     Dosage: 2 MG/MIN, 5 DAYS (INFUSION)
  3. KETAMINE [Concomitant]
     Active Substance: KETAMINE
     Indication: Migraine
     Dosage: FREQUENCY: 2 DAYS (INFUSION)
  4. RELPAX [Concomitant]
     Active Substance: ELETRIPTAN HYDROBROMIDE
     Indication: Migraine
     Dosage: 40-80 MG
  5. CLONIDINE [Concomitant]
     Active Substance: CLONIDINE
     Indication: Migraine prophylaxis
     Dosage: 50 MG, 2X/DAY
  6. MEMANTINE [Concomitant]
     Active Substance: MEMANTINE
     Indication: Migraine prophylaxis
     Dosage: 20 MG, DAILY

REACTIONS (1)
  - Pericarditis [Unknown]

NARRATIVE: CASE EVENT DATE: 20251017
